FAERS Safety Report 9312689 (Version 1)
Quarter: 2013Q2

REPORT INFORMATION
  Report Type: Spontaneous
  Country: SE (occurrence: SE)
  Receive Date: 20130528
  Receipt Date: 20130528
  Transmission Date: 20140414
  Serious: Yes (Hospitalization)
  Sender: FDA-Public Use
  Company Number: SE-JNJFOC-20130406040

PATIENT
  Age: 15 Year
  Sex: Female

DRUGS (2)
  1. IPREN [Suspect]
     Indication: HEADACHE
     Route: 048
     Dates: start: 20121017, end: 20121017
  2. ETHINYLESTRADIOL/LEVONORGESTREL [Concomitant]
     Dates: start: 201209

REACTIONS (4)
  - Anaphylactic reaction [Recovered/Resolved]
  - Dyspnoea [Recovered/Resolved]
  - Dysphagia [Recovered/Resolved]
  - Rash [Recovered/Resolved]
